FAERS Safety Report 7284181-0 (Version None)
Quarter: 2011Q1

REPORT INFORMATION
  Report Type: 
  Country: None (occurrence: None)
  Receive Date: 20110127
  Receipt Date: 20110113
  Transmission Date: 20110831
  Serious: Yes (Hospitalization)
  Sender: FDA-Public Use
  Company Number: 024602

PATIENT
  Sex: Male

DRUGS (13)
  1. FOLIC ACID [Concomitant]
  2. RIFAMPIN [Concomitant]
  3. URSODIOL [Concomitant]
  4. BENADRYL [Concomitant]
  5. CALCITRIOL [Concomitant]
  6. CYANOCOBALAMIN [Concomitant]
  7. PEPCID AC [Concomitant]
  8. PROTONIX [Concomitant]
  9. PREDNISONE [Concomitant]
  10. VITAMIN D [Concomitant]
  11. M.V.I. [Concomitant]
  12. CIMZIA [Suspect]
     Indication: CROHN'S DISEASE
     Dosage: (200 MG 1X/2 WEEKS SUBCUTANOUS)
     Route: 058
     Dates: start: 20090209
  13. IMODIUM /00384302/ [Concomitant]

REACTIONS (3)
  - CLOSTRIDIAL INFECTION [None]
  - ENTERITIS INFECTIOUS [None]
  - DIARRHOEA [None]
